FAERS Safety Report 19804885 (Version 1)
Quarter: 2021Q3

REPORT INFORMATION
  Report Type: Spontaneous
  Country: US (occurrence: US)
  Receive Date: 20210908
  Receipt Date: 20210908
  Transmission Date: 20211014
  Serious: Yes (Other)
  Sender: FDA-Public Use
  Company Number: US-COOPERSURGICAL, INC.-US-2021CPS002576

PATIENT
  Age: 21 Year
  Sex: Female
  Weight: 80.27 kg

DRUGS (1)
  1. PARAGARD T 380A [Suspect]
     Active Substance: COPPER
     Indication: CONTRACEPTION
     Dosage: UNK
     Route: 015
     Dates: start: 20210615, end: 20210820

REACTIONS (4)
  - Chlamydia test positive [Unknown]
  - Device expulsion [Recovered/Resolved]
  - Ovarian cyst [Not Recovered/Not Resolved]
  - Complication of device removal [Recovered/Resolved]

NARRATIVE: CASE EVENT DATE: 20210818
